FAERS Safety Report 8589421-3 (Version None)
Quarter: 2012Q3

REPORT INFORMATION
  Report Type: 
  Country: None (occurrence: None)
  Receive Date: 20120813
  Receipt Date: 20120801
  Transmission Date: 20120928
  Serious: No
  Sender: FDA-Public Use
  Company Number: US-ASTRAZENECA-2012SE54725

PATIENT
  Sex: Female

DRUGS (2)
  1. PULMICORT [Suspect]
     Dosage: 0.5 MCG/2 ML, HALF OF THE RESPULE IN THE MORNING AND HALF AT NIGHT
     Route: 055
     Dates: start: 20120701
  2. PULMICORT [Suspect]
     Indication: CHRONIC OBSTRUCTIVE PULMONARY DISEASE
     Route: 055
     Dates: start: 20110101

REACTIONS (4)
  - MALAISE [None]
  - INTENTIONAL DRUG MISUSE [None]
  - CHRONIC OBSTRUCTIVE PULMONARY DISEASE [None]
  - WEIGHT DECREASED [None]
